FAERS Safety Report 10389416 (Version 2)
Quarter: 2015Q1

REPORT INFORMATION
  Report Type: Spontaneous
  Country: US (occurrence: US)
  Receive Date: 20140818
  Receipt Date: 20150319
  Transmission Date: 20150720
  Serious: No
  Sender: FDA-Public Use
  Company Number: US-BIOGENIDEC-2014BI079084

PATIENT
  Sex: Female

DRUGS (1)
  1. TECFIDERA [Suspect]
     Active Substance: DIMETHYL FUMARATE
     Indication: MULTIPLE SCLEROSIS
     Route: 048
     Dates: start: 20140707, end: 20150301

REACTIONS (6)
  - Dry mouth [Recovered/Resolved]
  - Gastrointestinal disorder [Recovered/Resolved]
  - Drug dose omission [Not Recovered/Not Resolved]
  - Dry throat [Not Recovered/Not Resolved]
  - Aphthous stomatitis [Recovered/Resolved]
  - Flushing [Recovered/Resolved]
